FAERS Safety Report 4790460-9 (Version None)
Quarter: 2005Q4

REPORT INFORMATION
  Report Type: 
  Country: None (occurrence: None)
  Receive Date: 20051005
  Receipt Date: 20050921
  Transmission Date: 20060501
  Serious: No
  Sender: FDA-Public Use
  Company Number: US_0502113007

PATIENT
  Age: 30 Year
  Sex: Female
  Weight: 114 kg

DRUGS (2)
  1. ZYPREXA [Suspect]
     Indication: SCHIZOPHRENIA
     Dosage: 20 MG DAY
     Dates: start: 20000122, end: 20021031
  2. TRAZODONE [Concomitant]

REACTIONS (10)
  - BLOOD GLUCOSE INCREASED [None]
  - CONDITION AGGRAVATED [None]
  - CONSTIPATION [None]
  - DIABETES MELLITUS [None]
  - GLUCOSE TOLERANCE IMPAIRED [None]
  - HAEMORRHOIDS [None]
  - INSULIN RESISTANCE [None]
  - THIRST [None]
  - VISION BLURRED [None]
  - WEIGHT INCREASED [None]
